FAERS Safety Report 7987373-8 (Version None)
Quarter: 2011Q4

REPORT INFORMATION
  Report Type: 
  Country: None (occurrence: None)
  Receive Date: 20111216
  Receipt Date: 20111025
  Transmission Date: 20120403
  Serious: No
  Sender: FDA-Public Use
  Company Number: US-BRISTOL-MYERS SQUIBB COMPANY-16193559

PATIENT
  Age: 40 Year
  Sex: Female
  Weight: 112 kg

DRUGS (2)
  1. ABILIFY [Suspect]
     Indication: BIPOLAR DISORDER
     Dates: start: 20111024
  2. ABILIFY [Suspect]
     Indication: SCHIZOPHRENIA
     Dates: start: 20111024

REACTIONS (1)
  - FOOD CRAVING [None]
